FAERS Safety Report 23109673 (Version 2)
Quarter: 2023Q4

REPORT INFORMATION
  Report Type: Spontaneous
  Country: None (occurrence: A1)
  Receive Date: 20231026
  Receipt Date: 20231030
  Transmission Date: 20240109
  Serious: Yes (Other)
  Sender: FDA-Public Use
  Company Number: A1-Jiangsu Hansoh Pharmaceutical Co., Ltd-2147480

PATIENT
  Age: 73 Year
  Sex: Male

DRUGS (1)
  1. DECITABINE [Suspect]
     Active Substance: DECITABINE
     Indication: Chemotherapy

REACTIONS (1)
  - Organising pneumonia [Recovering/Resolving]
